FAERS Safety Report 14814559 (Version 1)
Quarter: 2018Q2

REPORT INFORMATION
  Report Type: Spontaneous
  Country: DE (occurrence: DE)
  Receive Date: 20180426
  Receipt Date: 20180426
  Transmission Date: 20180711
  Serious: Yes (Hospitalization, Congenital Anomaly)
  Sender: FDA-Public Use
  Company Number: DE-TORRENT-00008153

PATIENT
  Sex: Female

DRUGS (2)
  1. VALPROAT [Suspect]
     Active Substance: VALPROATE SODIUM
     Indication: EPILEPSY
     Dosage: MATERNAL DOSE: 1000 MG 1/2-0-1
     Route: 064
  2. LAMOTRIGINE. [Suspect]
     Active Substance: LAMOTRIGINE
     Indication: EPILEPSY
     Dosage: 100 MG MILLIGRAM(S) EVERY 2 DAY
     Route: 064

REACTIONS (12)
  - Cerebral ventricle dilatation [Unknown]
  - Spina bifida [Unknown]
  - Foetal anticonvulsant syndrome [Unknown]
  - Low set ears [Unknown]
  - Dysmorphism [Unknown]
  - Cardiac aneurysm [Unknown]
  - Foetal exposure during pregnancy [Unknown]
  - Paralysis [Unknown]
  - Talipes [Unknown]
  - Meningomyelocele [Unknown]
  - Arnold-Chiari malformation [Unknown]
  - Microcephaly [Unknown]
